FAERS Safety Report 8887415 (Version 1)
Quarter: 2012Q4

REPORT INFORMATION
  Report Type: Spontaneous
  Country: US (occurrence: None)
  Receive Date: 20121101
  Receipt Date: 20121101
  Transmission Date: 20130627
  Serious: Yes (Hospitalization)
  Sender: FDA-Public Use
  Company Number: None

PATIENT
  Age: 32 Year
  Sex: Female
  Weight: 100 kg

DRUGS (2)
  1. CIPROFLOXACIN [Suspect]
     Indication: ACUTE PYELONEPHRITIS
     Dosage: RECENT
     Route: 048
  2. NORCO [Concomitant]

REACTIONS (1)
  - Rhabdomyolysis [None]
